FAERS Safety Report 11735835 (Version 1)
Quarter: 2015Q4

REPORT INFORMATION
  Report Type: Spontaneous
  Country: US (occurrence: US)
  Receive Date: 20151113
  Receipt Date: 20151113
  Transmission Date: 20160304
  Serious: No
  Sender: FDA-Public Use
  Company Number: US-JNJFOC-20151015217

PATIENT
  Sex: Female
  Weight: 74.84 kg

DRUGS (2)
  1. INVOKANA [Suspect]
     Active Substance: CANAGLIFLOZIN
     Indication: WEIGHT DECREASED
     Route: 048
  2. SPIRONOLACTONE. [Suspect]
     Active Substance: SPIRONOLACTONE
     Indication: HAIR DISORDER
     Route: 048

REACTIONS (4)
  - Product use issue [Unknown]
  - Hair disorder [Unknown]
  - Weight decreased [Unknown]
  - Blood potassium increased [Recovered/Resolved]
